FAERS Safety Report 10723878 (Version 1)
Quarter: 2015Q1

REPORT INFORMATION
  Report Type: Spontaneous
  Country: US (occurrence: US)
  Receive Date: 20150120
  Receipt Date: 20150120
  Transmission Date: 20150721
  Serious: No
  Sender: FDA-Public Use
  Company Number: US-009507513-1501USA001570

PATIENT
  Sex: Female

DRUGS (1)
  1. PROVENTIL [Suspect]
     Active Substance: ALBUTEROL
     Dosage: FEW TIME A MONTH AS NEEDED
     Route: 055

REACTIONS (5)
  - Wrong technique in drug usage process [Unknown]
  - Product quality issue [Unknown]
  - Underdose [Unknown]
  - No adverse event [Unknown]
  - Inappropriate schedule of drug administration [Unknown]
